FAERS Safety Report 9248161 (Version 3)
Quarter: 2013Q2

REPORT INFORMATION
  Report Type: Spontaneous
  Country: IT (occurrence: IT)
  Receive Date: 20130423
  Receipt Date: 20130509
  Transmission Date: 20140414
  Serious: Yes (Hospitalization)
  Sender: FDA-Public Use
  Company Number: IT-ASTRAZENECA-2013SE25483

PATIENT
  Age: 11495 Day
  Sex: Female

DRUGS (8)
  1. SEROQUEL [Suspect]
     Route: 048
  2. SEROQUEL [Suspect]
     Route: 048
     Dates: start: 20130407, end: 20130407
  3. TRITTICO [Suspect]
     Dosage: 60 MG/ML ONCE/SINGLE ADMINISTRATION
     Route: 048
     Dates: start: 20130407, end: 20130407
  4. DEPAKIN [Concomitant]
     Route: 048
  5. LORANS [Concomitant]
     Dosage: 2 MG/ML, 140 GGT, 20+20+100 DROPS
     Route: 048
  6. CARDICOR [Concomitant]
  7. MEDROL [Concomitant]
     Route: 048
  8. VALIUM [Concomitant]
     Dosage: AS REQUIRED

REACTIONS (3)
  - Intentional overdose [Recovered/Resolved]
  - Drug abuse [Recovered/Resolved]
  - Sopor [Recovered/Resolved]
